FAERS Safety Report 6654454-0 (Version None)
Quarter: 2010Q1

REPORT INFORMATION
  Report Type: 
  Country: None (occurrence: None)
  Receive Date: 20100326
  Receipt Date: 20100317
  Transmission Date: 20100710
  Serious: Yes (Hospitalization)
  Sender: FDA-Public Use
  Company Number: GXBR2010US00733

PATIENT
  Age: 76 Year
  Sex: Female

DRUGS (7)
  1. ALPRAZOLAM [Suspect]
  2. VENLAFAXINE HYDROCHLORIDE (NGX) [Suspect]
  3. ZOLPIDEM TARTRATE (NGX) [Suspect]
  4. PANTOPRAZOLE [Suspect]
  5. OXYCODONE [Suspect]
  6. MACROGOL [Suspect]
  7. DASATINIB [Suspect]
     Dosage: 70 MG, QD
     Route: 048
     Dates: start: 20091030, end: 20091215

REACTIONS (20)
  - ABDOMINAL PAIN [None]
  - ANAEMIA [None]
  - ANXIETY [None]
  - CHEST PAIN [None]
  - CONFUSIONAL STATE [None]
  - CONSTIPATION [None]
  - FATIGUE [None]
  - FEELING JITTERY [None]
  - GAIT DISTURBANCE [None]
  - HEADACHE [None]
  - HEPATIC ENZYME INCREASED [None]
  - HYPERCALCAEMIA [None]
  - HYPERTENSION [None]
  - MUSCULAR WEAKNESS [None]
  - MUSCULOSKELETAL PAIN [None]
  - NERVOUSNESS [None]
  - OEDEMA [None]
  - PAIN [None]
  - URINARY INCONTINENCE [None]
  - URINARY TRACT INFECTION [None]
